FAERS Safety Report 7124827-0 (Version None)
Quarter: 2010Q4

REPORT INFORMATION
  Report Type: 
  Country: None (occurrence: None)
  Receive Date: 20101129
  Receipt Date: 20101123
  Transmission Date: 20110411
  Serious: Yes (Hospitalization)
  Sender: FDA-Public Use
  Company Number: US-PFIZER INC-2010157315

PATIENT
  Sex: Male
  Weight: 30.7 kg

DRUGS (3)
  1. SOMATROPIN [Suspect]
     Indication: BODY HEIGHT BELOW NORMAL
     Dosage: 1.2 MG, 1X/DAY
     Route: 058
     Dates: start: 20091030, end: 20101120
  2. CONCERTA [Suspect]
     Indication: ATTENTION DEFICIT/HYPERACTIVITY DISORDER
     Dosage: 18 MG, 1X/DAY, SCHOOL DAYS
     Route: 048
     Dates: start: 20090811, end: 20101120
  3. SYNTHROID [Concomitant]
     Dosage: 50 MCG, DAILY
     Route: 048
     Dates: start: 20061102

REACTIONS (1)
  - PETECHIAE [None]
